FAERS Safety Report 4398659-0 (Version None)
Quarter: 2004Q3

REPORT INFORMATION
  Report Type: 
  Country: None (occurrence: None)
  Receive Date: 20040712
  Receipt Date: 20040630
  Transmission Date: 20050211
  Serious: Yes (Hospitalization)
  Sender: FDA-Public Use
  Company Number: 2004SE03695

PATIENT
  Age: 8 Year
  Sex: Female

DRUGS (1)
  1. SEROQUEL [Suspect]
     Dates: start: 20040617, end: 20040617

REACTIONS (4)
  - ACCIDENTAL EXPOSURE [None]
  - ACCIDENTAL OVERDOSE [None]
  - CONVULSION [None]
  - MEDICATION ERROR [None]
